FAERS Safety Report 21507671 (Version 1)
Quarter: 2022Q4

REPORT INFORMATION
  Report Type: Spontaneous
  Country: US (occurrence: None)
  Receive Date: 20221025
  Receipt Date: 20221025
  Transmission Date: 20230113
  Serious: Yes (Hospitalization)
  Sender: FDA-Public Use
  Company Number: None

PATIENT
  Age: 62 Year
  Sex: Female

DRUGS (1)
  1. CAPECITABINE [Suspect]
     Active Substance: CAPECITABINE
     Dosage: FREQUENCY : TWICE A DAY;?
     Route: 048
     Dates: start: 202206, end: 202208

REACTIONS (12)
  - Large intestine infection [None]
  - Hypotension [None]
  - Weight decreased [None]
  - Infusion related reaction [None]
  - Diplopia [None]
  - Blepharospasm [None]
  - Tremor [None]
  - Dyspnoea [None]
  - Throat tightness [None]
  - Dyspnoea [None]
  - Dysphagia [None]
  - Thrombosis [None]

NARRATIVE: CASE EVENT DATE: 20220906
